FAERS Safety Report 4695529-5 (Version None)
Quarter: 2005Q2

REPORT INFORMATION
  Report Type: 
  Country: None (occurrence: None)
  Receive Date: 20050608
  Receipt Date: 20050426
  Transmission Date: 20051028
  Serious: Yes (Hospitalization)
  Sender: FDA-Public Use
  Company Number: A03200501224

PATIENT

DRUGS (4)
  1. ELOXATIN [Suspect]
     Indication: GASTRIC CANCER
     Dosage: INTRAVENOUS NOS
     Route: 042
     Dates: start: 20050401, end: 20050401
  2. AVASTIN [Suspect]
     Indication: GASTRIC CANCER
     Dosage: INTRAVENOUS NOS
     Route: 042
     Dates: start: 20050401, end: 20050401
  3. FLUOROURACIL [Concomitant]
  4. LEUCOVORIN [Concomitant]

REACTIONS (4)
  - BLOOD PRESSURE DECREASED [None]
  - LOSS OF CONSCIOUSNESS [None]
  - PRURITUS [None]
  - SYNCOPE [None]
